FAERS Safety Report 18336579 (Version 1)
Quarter: 2020Q4

REPORT INFORMATION
  Report Type: Spontaneous
  Country: IT (occurrence: IT)
  Receive Date: 20201001
  Receipt Date: 20201001
  Transmission Date: 20210113
  Serious: Yes (Hospitalization)
  Sender: FDA-Public Use
  Company Number: IT-TEIKOKU PHARMA USA-TPU2020-00790

PATIENT
  Age: 83 Year
  Sex: Female
  Weight: 108 kg

DRUGS (3)
  1. LYRICA [Suspect]
     Active Substance: PREGABALIN
     Indication: BONE PAIN
     Route: 048
     Dates: start: 20200914, end: 20200914
  2. TRAMADOL HYDROCHLORIDE. [Suspect]
     Active Substance: TRAMADOL HYDROCHLORIDE
  3. VERSATIS [Suspect]
     Active Substance: LIDOCAINE
     Indication: BONE PAIN
     Route: 062
     Dates: start: 20200914, end: 20200914

REACTIONS (6)
  - Hypotension [Recovered/Resolved]
  - Dyspnoea [Recovered/Resolved]
  - Cyanosis [Recovered/Resolved]
  - Asthenia [Recovered/Resolved]
  - Drug interaction [Unknown]
  - Malaise [Recovered/Resolved]

NARRATIVE: CASE EVENT DATE: 20200914
